FAERS Safety Report 9503161 (Version 1)
Quarter: 2013Q3

REPORT INFORMATION
  Report Type: Spontaneous
  Country: US (occurrence: US)
  Receive Date: 20130906
  Receipt Date: 20130906
  Transmission Date: 20140515
  Serious: No
  Sender: FDA-Public Use
  Company Number: US-PFIZER INC-2013256649

PATIENT
  Age: 46 Year
  Sex: Female
  Weight: 65.76 kg

DRUGS (1)
  1. LYRICA [Suspect]
     Dosage: 50 MG, 1X/DAY

REACTIONS (2)
  - Sensation of heaviness [Unknown]
  - Local swelling [Unknown]
